FAERS Safety Report 13258653 (Version 2)
Quarter: 2017Q1

REPORT INFORMATION
  Report Type: Report from Study
  Country: US (occurrence: US)
  Receive Date: 20170222
  Receipt Date: 20170328
  Transmission Date: 20170428
  Serious: Yes (Other)
  Sender: FDA-Public Use
  Company Number: US-ROCHE-1896396

PATIENT
  Age: 20 Year
  Sex: Male

DRUGS (3)
  1. XOLAIR [Suspect]
     Active Substance: OMALIZUMAB
     Indication: CHRONIC SPONTANEOUS URTICARIA
     Route: 065
     Dates: start: 20170217
  2. ALLERGY INJECTION UNKNOWN ALLERGENS [Concomitant]
     Indication: HYPERSENSITIVITY
     Dosage: YES
     Route: 065
  3. ALLERGEN IMMUNOTHERAPY - ALLERGENS INCLUDE: CAT HAIR, TREE POLLEN, GRA [Concomitant]
     Indication: HYPERSENSITIVITY
     Dosage: ONGOING:YES;VIAL 1 POLLEN,VIAL 2 MOLD,CAT,DOG,DUST
     Route: 065

REACTIONS (3)
  - Tachycardia [Unknown]
  - Throat tightness [Unknown]
  - Pruritus [Unknown]

NARRATIVE: CASE EVENT DATE: 20170217
